FAERS Safety Report 8457260-X (Version None)
Quarter: 2012Q2

REPORT INFORMATION
  Report Type: 
  Country: None (occurrence: None)
  Receive Date: 20120621
  Receipt Date: 20120615
  Transmission Date: 20120825
  Serious: Yes (Hospitalization)
  Sender: FDA-Public Use
  Company Number: CA-ROCHE-1079347

PATIENT
  Sex: Female
  Weight: 83.99 kg

DRUGS (11)
  1. IMURAN [Concomitant]
  2. MULTI-VITAMIN [Concomitant]
  3. ESCITALOPRAM [Concomitant]
  4. RANITIDINE [Concomitant]
  5. VOLTAREN [Concomitant]
  6. MELATONIN [Concomitant]
  7. CALCIUM [Concomitant]
  8. CLONAZEPAM [Concomitant]
  9. SYNTHROID [Concomitant]
  10. MABTHERA [Suspect]
     Indication: RHEUMATOID ARTHRITIS
     Dosage: DOSE ON DAY 1, DAY 15
     Route: 042
     Dates: start: 20100909
  11. ACETAMINOPHEN [Concomitant]

REACTIONS (2)
  - STRESS [None]
  - PAIN [None]
